FAERS Safety Report 9607450 (Version 1)
Quarter: 2013Q4

REPORT INFORMATION
  Report Type: Spontaneous
  Country: US (occurrence: None)
  Receive Date: 20131007
  Receipt Date: 20131007
  Transmission Date: 20140711
  Serious: Yes (Other)
  Sender: FDA-Public Use
  Company Number: 1915416

PATIENT
  Age: 81 Year
  Sex: Female
  Weight: 84.82 kg

DRUGS (2)
  1. DEXTROSE [Suspect]
     Indication: PRODUCT USED FOR UNKNOWN INDICATION
     Dosage: (NOT OTHERWISE SPECIFIED)
     Route: 042
  2. NORMAL SALINE [Concomitant]

REACTIONS (5)
  - Blood glucose decreased [None]
  - Syringe issue [None]
  - Infusion site extravasation [None]
  - Product quality issue [None]
  - Wrong technique in drug usage process [None]
